FAERS Safety Report 7432656-3 (Version None)
Quarter: 2011Q2

REPORT INFORMATION
  Report Type: 
  Country: None (occurrence: None)
  Receive Date: 20110422
  Receipt Date: 20110414
  Transmission Date: 20111010
  Serious: Yes (Hospitalization)
  Sender: FDA-Public Use
  Company Number: CA-ASTRAZENECA-2011SE21416

PATIENT
  Age: 25001 Day
  Sex: Male

DRUGS (5)
  1. CRESTOR [Suspect]
     Indication: HYPERCHOLESTEROLAEMIA
     Route: 048
     Dates: start: 20101014
  2. TORADOL [Concomitant]
     Indication: PAIN
     Route: 048
  3. MORPHINE [Concomitant]
     Indication: PAIN
     Route: 048
  4. TAMAZAPAM [Concomitant]
     Indication: SLEEP DISORDER
     Route: 048
  5. KETOROLAC TROMETHAMINE [Concomitant]
     Indication: PAIN
     Route: 048

REACTIONS (5)
  - SLEEP DISORDER DUE TO GENERAL MEDICAL CONDITION, INSOMNIA TYPE [None]
  - FALL [None]
  - CORONARY ARTERY BYPASS [None]
  - MYALGIA [None]
  - MUSCULAR WEAKNESS [None]
